FAERS Safety Report 8275458-0 (Version None)
Quarter: 2012Q2

REPORT INFORMATION
  Report Type: 
  Country: None (occurrence: None)
  Receive Date: 20120411
  Receipt Date: 20120402
  Transmission Date: 20120825
  Serious: Yes (Hospitalization)
  Sender: FDA-Public Use
  Company Number: FR-BAXTER-2012BAX001888

PATIENT
  Sex: Female

DRUGS (1)
  1. KIOVIG [Suspect]
     Indication: IDIOPATHIC THROMBOCYTOPENIC PURPURA
     Route: 042
     Dates: start: 20120316, end: 20120316

REACTIONS (4)
  - MENINGITIS ASEPTIC [None]
  - PYREXIA [None]
  - CHILLS [None]
  - HEADACHE [None]
